FAERS Safety Report 7065623-2 (Version None)
Quarter: 2010Q4

REPORT INFORMATION
  Report Type: 
  Country: None (occurrence: None)
  Receive Date: 20101027
  Receipt Date: 20101015
  Transmission Date: 20110411
  Serious: Yes (Other)
  Sender: FDA-Public Use
  Company Number: US-WYE-H18345410

PATIENT

DRUGS (1)
  1. RELISTOR [Suspect]
     Dosage: UNKNOWN
     Route: 058

REACTIONS (1)
  - CONVULSION [None]
